FAERS Safety Report 5995802-4 (Version None)
Quarter: 2008Q4

REPORT INFORMATION
  Report Type: 
  Country: None (occurrence: None)
  Receive Date: 20081212
  Receipt Date: 20081205
  Transmission Date: 20090506
  Serious: Yes (Death, Life-Threatening, Hospitalization)
  Sender: FDA-Public Use
  Company Number: HU-JNJFOC-20080802398

PATIENT
  Age: 59 Year
  Sex: Female

DRUGS (5)
  1. REMICADE [Suspect]
     Route: 042
  2. REMICADE [Suspect]
     Route: 042
  3. REMICADE [Suspect]
     Route: 042
  4. REMICADE [Suspect]
     Indication: PSORIATIC ARTHROPATHY
     Route: 042
  5. MESULID [Suspect]
     Indication: PSORIATIC ARTHROPATHY

REACTIONS (6)
  - ASPERGILLOSIS [None]
  - AUTOIMMUNE HEPATITIS [None]
  - BRAIN ABSCESS [None]
  - DRUG TOXICITY [None]
  - ENDOCARDITIS [None]
  - SEPSIS [None]
